FAERS Safety Report 11026302 (Version 1)
Quarter: 2015Q2

REPORT INFORMATION
  Report Type: Spontaneous
  Country: US (occurrence: None)
  Receive Date: 20150413
  Receipt Date: 20150413
  Transmission Date: 20150821
  Serious: No
  Sender: FDA-Public Use
  Company Number: None

PATIENT
  Age: 82 Year
  Sex: Female
  Weight: 50.8 kg

DRUGS (9)
  1. BCOMPLEX [Concomitant]
  2. ASPIRIN. [Concomitant]
     Active Substance: ASPIRIN
  3. ZINC [Concomitant]
     Active Substance: ZINC\ZINC CHLORIDE
  4. MULTI VIT. [Concomitant]
  5. COENZYME Q10 [Concomitant]
     Active Substance: UBIDECARENONE
  6. GABAPENTIN NEUROTIN 800MG GLENMARK PHARMA [Suspect]
     Active Substance: GABAPENTIN
     Indication: POST HERPETIC NEURALGIA
     Route: 048
     Dates: start: 20150115, end: 20150315
  7. VIT. D, FOLIC ACID, VIT. B - COMPLEX [Concomitant]
     Active Substance: FOLIC ACID\VITAMINS
  8. D 3 [Concomitant]
  9. E [Concomitant]

REACTIONS (4)
  - Product substitution issue [None]
  - Abdominal distension [None]
  - Abdominal pain upper [None]
  - Oral disorder [None]

NARRATIVE: CASE EVENT DATE: 20150115
